FAERS Safety Report 12282948 (Version 1)
Quarter: 2016Q2

REPORT INFORMATION
  Report Type: Spontaneous
  Country: US (occurrence: US)
  Receive Date: 20160419
  Receipt Date: 20160419
  Transmission Date: 20160815
  Serious: No
  Sender: FDA-Public Use
  Company Number: US-PFIZER INC-2016197155

PATIENT
  Age: 65 Year
  Sex: Female
  Weight: 111.13 kg

DRUGS (1)
  1. NICOTROL [Suspect]
     Active Substance: NICOTINE
     Indication: SMOKING CESSATION THERAPY
     Dosage: ONE PUFF EVERY TWO HOURS
     Dates: start: 20160329

REACTIONS (2)
  - Drug ineffective [Unknown]
  - Product quality issue [Unknown]
